FAERS Safety Report 8585649-7 (Version None)
Quarter: 2012Q3

REPORT INFORMATION
  Report Type: 
  Country: None (occurrence: None)
  Receive Date: 20120802
  Receipt Date: 20120802
  Transmission Date: 20120928
  Serious: Yes (Other)
  Sender: FDA-Public Use
  Company Number: None

PATIENT
  Sex: Male

DRUGS (1)
  1. ENBREL 50MG/ML SURECLICK AUTO INJECTOR PFIZOR [Suspect]
     Indication: PSORIASIS
     Dosage: 50MG WEEKLY SUBCUTANEOUS
     Route: 058
     Dates: start: 20120621, end: 20120712

REACTIONS (2)
  - INJECTION SITE URTICARIA [None]
  - SWELLING [None]
